FAERS Safety Report 25895883 (Version 1)
Quarter: 2025Q4

REPORT INFORMATION
  Report Type: Spontaneous
  Country: US (occurrence: None)
  Receive Date: 20251007
  Receipt Date: 20251007
  Transmission Date: 20260117
  Serious: Yes (Other)
  Sender: FDA-CTU
  Company Number: None

PATIENT
  Age: 56 Year
  Sex: Female
  Weight: 87.5 kg

DRUGS (1)
  1. OMALIZUMAB [Suspect]
     Active Substance: OMALIZUMAB
     Indication: Asthma
     Dosage: OTHER FREQUENCY : EVERY 28 DAYS;?
     Route: 058

REACTIONS (7)
  - Muscular weakness [None]
  - Fatigue [None]
  - Joint stiffness [None]
  - Sensitive skin [None]
  - Paraesthesia [None]
  - Anxiety [None]
  - Hypotension [None]

NARRATIVE: CASE EVENT DATE: 20250805
